FAERS Safety Report 13137724 (Version 3)
Quarter: 2017Q1

REPORT INFORMATION
  Report Type: Spontaneous
  Country: US (occurrence: US)
  Receive Date: 20170123
  Receipt Date: 20170123
  Transmission Date: 20170428
  Serious: No
  Sender: FDA-Public Use
  Company Number: US-UNITED THERAPEUTICS-UNT-2016-013369

PATIENT
  Sex: Female
  Weight: 89.8 kg

DRUGS (2)
  1. ADCIRCA [Concomitant]
     Active Substance: TADALAFIL
     Indication: PRODUCT USED FOR UNKNOWN INDICATION
  2. REMODULIN [Suspect]
     Active Substance: TREPROSTINIL
     Indication: PULMONARY ARTERIAL HYPERTENSION
     Dosage: 0.0465 ?G/KG, CONTINUING
     Route: 058
     Dates: start: 20140310

REACTIONS (5)
  - Infusion site erythema [Unknown]
  - Dermatitis contact [Unknown]
  - Infusion site infection [Unknown]
  - Infusion site warmth [Unknown]
  - Infusion site nodule [Unknown]

NARRATIVE: CASE EVENT DATE: 2016
